FAERS Safety Report 4632678-1 (Version None)
Quarter: 2005Q2

REPORT INFORMATION
  Report Type: 
  Country: None (occurrence: None)
  Receive Date: 20050331
  Receipt Date: 20041026
  Transmission Date: 20051028
  Serious: Yes (Other)
  Sender: FDA-Public Use
  Company Number: 200415192BCC

PATIENT
  Age: 77 Year
  Sex: Female
  Weight: 82.1011 kg

DRUGS (7)
  1. ALEVE [Suspect]
     Indication: ARTHRITIS
     Dosage: 220-440 MG, PRN, ORAL
     Route: 048
     Dates: end: 20041023
  2. ADVIL [Suspect]
     Dosage: TID
     Dates: end: 20041026
  3. SYNTHROID [Concomitant]
  4. CLARINEX /USA/ [Concomitant]
  5. BUSPAR [Concomitant]
  6. ADVAIR DISKUS 100/50 [Concomitant]
  7. BEXTRA [Suspect]
     Dates: start: 20031201, end: 20041001

REACTIONS (1)
  - HAEMATOCHEZIA [None]
